FAERS Safety Report 6079911-X (Version None)
Quarter: 2009Q1

REPORT INFORMATION
  Report Type: 
  Country: None (occurrence: None)
  Receive Date: 20090217
  Receipt Date: 20090206
  Transmission Date: 20090719
  Serious: Yes (Other)
  Sender: FDA-Public Use
  Company Number: BR-ROCHE-595773

PATIENT
  Sex: Female
  Weight: 59 kg

DRUGS (10)
  1. BONIVA [Suspect]
     Indication: OSTEOPENIA
     Route: 048
     Dates: start: 20070201, end: 20080930
  2. ACTONEL [Suspect]
     Indication: OSTEOPENIA
     Route: 048
  3. ENDRONAX [Suspect]
     Indication: OSTEOPENIA
     Route: 048
  4. ALENDRONIC ACID [Suspect]
     Indication: OSTEOPENIA
     Dosage: PHARMACY COMPOUND ALENDRONIC ACID
     Route: 048
  5. FLUOXETINE HCL [Concomitant]
     Indication: ANXIETY
     Dosage: OTHER INDICATION: DEPRESSION
     Route: 048
     Dates: start: 20051101
  6. TAMOXIFEN CITRATE [Concomitant]
     Indication: BREAST CANCER
     Route: 048
     Dates: start: 20051101
  7. CALCIUM [Concomitant]
     Indication: OSTEOPENIA
     Dosage: DRUG: OS-CAL-D
     Route: 048
     Dates: start: 20060101
  8. VITAMIN B COMPLEX CAP [Concomitant]
     Dates: start: 20081001
  9. OSTEONUTRI [Concomitant]
  10. CALCIUM [Concomitant]

REACTIONS (2)
  - OSTEOMYELITIS [None]
  - OSTEONECROSIS [None]
